FAERS Safety Report 23913915 (Version 2)
Quarter: 2024Q3

REPORT INFORMATION
  Report Type: Spontaneous
  Country: GB (occurrence: GB)
  Receive Date: 20240529
  Receipt Date: 20240701
  Transmission Date: 20241017
  Serious: No
  Sender: BECTON DICKINSON
  Company Number: GB-BECTON DICKINSON-GB-BD-24-000305

PATIENT

DRUGS (1)
  1. CHLORAPREP [Suspect]
     Active Substance: CHLORHEXIDINE GLUCONATE\ISOPROPYL ALCOHOL
     Indication: Infection prophylaxis
     Dosage: 1 MILLILITER, SINGLE
     Route: 061
     Dates: start: 20240428, end: 20240428

REACTIONS (4)
  - Scratch [Recovered/Resolved]
  - Erythema [Recovered/Resolved]
  - Injury associated with device [Unknown]
  - Device malfunction [Unknown]

NARRATIVE: CASE EVENT DATE: 20240428
